FAERS Safety Report 12267848 (Version 14)
Quarter: 2018Q3

REPORT INFORMATION
  Report Type: Report from Study
  Country: AT (occurrence: AT)
  Receive Date: 20160414
  Receipt Date: 20180709
  Transmission Date: 20181010
  Serious: Yes (Death, Hospitalization, Other)
  Sender: FDA-Public Use
  Company Number: AT-INCYTE CORPORATION-2014IN003239

PATIENT

DRUGS (57)
  1. JAKAVI [Suspect]
     Active Substance: RUXOLITINIB
     Indication: MYELOFIBROSIS
     Dosage: 40 MG, QD
     Route: 048
     Dates: start: 20120319
  2. JAKAVI [Suspect]
     Active Substance: RUXOLITINIB
     Dosage: 10 MG, UNK
     Route: 048
     Dates: start: 20150814
  3. BISOPROLOL [Concomitant]
     Active Substance: BISOPROLOL
     Indication: HYPERTENSION
     Dosage: 0.5 DF, QD (0?0?1/2)
     Route: 065
     Dates: start: 20120316
  4. APREDNISLON [Concomitant]
     Active Substance: PREDNISOLONE
     Dosage: UNK
     Route: 065
     Dates: start: 20141210, end: 20141214
  5. AVELOX [Concomitant]
     Active Substance: MOXIFLOXACIN HYDROCHLORIDE
     Indication: ORAL HERPES
     Dosage: UNK
     Route: 065
     Dates: start: 20150730, end: 20150813
  6. JAKAVI [Suspect]
     Active Substance: RUXOLITINIB
     Dosage: 15 MG, UNK
     Route: 048
  7. SORTIS [Concomitant]
     Active Substance: ATORVASTATIN
     Indication: HYPERCHOLESTEROLAEMIA
     Dosage: 0.5 DF, QD (0?0?1/2)
     Route: 065
     Dates: start: 20100531
  8. THROMBO ASS [Concomitant]
     Active Substance: ASPIRIN
     Indication: THROMBOSIS
     Dosage: UNK
     Route: 065
     Dates: start: 20100531, end: 20141221
  9. NOVALGIN                           /00169801/ [Concomitant]
     Active Substance: ACETAMINOPHEN\CAFFEINE\PROPYPHENAZONE
     Indication: ARTHRALGIA
     Dosage: UNK
     Route: 065
     Dates: start: 20150914, end: 20150920
  10. NOVALGIN                           /00169801/ [Concomitant]
     Active Substance: ACETAMINOPHEN\CAFFEINE\PROPYPHENAZONE
     Dosage: UNK
     Route: 065
     Dates: start: 20151202
  11. DANCOR [Concomitant]
     Active Substance: NICORANDIL
     Indication: CORONARY ARTERY DISEASE
     Dosage: UNK
     Route: 065
     Dates: start: 20100531, end: 20150426
  12. APREDNISLON [Concomitant]
     Active Substance: PREDNISOLONE
     Dosage: UNK
     Route: 065
     Dates: start: 20150127, end: 20150131
  13. APREDNISLON [Concomitant]
     Active Substance: PREDNISOLONE
     Dosage: UNK
     Route: 065
     Dates: start: 20150217, end: 20150217
  14. PANTOLOC//PANTOPRAZOLE SODIUM SESQUIHYDRATE [Concomitant]
     Active Substance: PANTOPRAZOLE SODIUM
     Indication: PRODUCT USED FOR UNKNOWN INDICATION
     Dosage: UNK UNK, PRN
     Route: 065
     Dates: start: 20140627, end: 201605
  15. TRAMAL [Concomitant]
     Active Substance: TRAMADOL
     Indication: ARTHRALGIA
     Dosage: PRN
     Route: 065
     Dates: start: 20141121, end: 20150630
  16. RINGER LACTAT                      /03352501/ [Concomitant]
     Indication: DEHYDRATION
     Dosage: UNK
     Route: 065
     Dates: start: 20150309, end: 20150309
  17. LIDAPRIM [Concomitant]
     Indication: INFECTION
     Dosage: UNK
     Route: 065
     Dates: start: 20150907, end: 20150913
  18. UROSIN [Concomitant]
     Active Substance: ALLOPURINOL
     Indication: PRODUCT USED FOR UNKNOWN INDICATION
     Dosage: 30 MG, QD
     Route: 065
     Dates: start: 20141121, end: 20141222
  19. ERYTHROCYTES [Concomitant]
     Active Substance: HUMAN RED BLOOD CELL
     Indication: PRODUCT USED FOR UNKNOWN INDICATION
     Dosage: 4 CONCETRATES
     Route: 065
     Dates: start: 20151030, end: 20151031
  20. JAKAVI [Suspect]
     Active Substance: RUXOLITINIB
     Dosage: 40 MG, UNK
     Route: 048
     Dates: start: 20150601, end: 20150723
  21. THROMBO ASS [Concomitant]
     Active Substance: ASPIRIN
     Dosage: UNK
     Route: 065
     Dates: start: 20150312, end: 20150427
  22. THROMBO ASS [Concomitant]
     Active Substance: ASPIRIN
     Dosage: UNK
     Route: 065
     Dates: start: 20160224
  23. APREDNISLON [Concomitant]
     Active Substance: PREDNISOLONE
     Dosage: UNK
     Route: 065
     Dates: start: 20150324, end: 20150327
  24. UROSIN [Concomitant]
     Active Substance: ALLOPURINOL
     Dosage: UNK
     Route: 065
     Dates: start: 20150305
  25. LEVOFLOXACIN. [Concomitant]
     Active Substance: LEVOFLOXACIN
     Indication: HYPERSENSITIVITY
     Dosage: UNK
     Route: 065
  26. SPIROBENE [Concomitant]
     Active Substance: SPIRONOLACTONE
     Indication: HYPERTENSION
     Dosage: 100 MG, QOD (1/S EVERY OTHER DAY)
     Route: 065
     Dates: start: 20140325
  27. EXJADE [Concomitant]
     Active Substance: DEFERASIROX
     Indication: IRON OVERLOAD
     Dosage: 500 MG, PRN (IF NEEDED)
     Route: 065
     Dates: start: 20150429
  28. PLAVIX [Concomitant]
     Active Substance: CLOPIDOGREL BISULFATE
     Indication: CORONARY ARTERY DISEASE
     Dosage: UNK
     Route: 065
     Dates: start: 20100531, end: 20140622
  29. APREDNISLON [Concomitant]
     Active Substance: PREDNISOLONE
     Indication: PRODUCT USED FOR UNKNOWN INDICATION
     Dosage: UNK
     Route: 065
     Dates: start: 20141030, end: 20141103
  30. NEURONTIN [Concomitant]
     Active Substance: GABAPENTIN
     Indication: NEURALGIA
     Dosage: UNK
     Route: 065
     Dates: start: 20160113
  31. AUGMENTIN [Concomitant]
     Active Substance: AMOXICILLIN\CLAVULANATE POTASSIUM
     Dosage: UNK
     Route: 065
     Dates: start: 20150914, end: 20150920
  32. NOVALGIN (CAFFEINE\PARACETAMOL\PROPYPHENAZONE) [Concomitant]
     Active Substance: ACETAMINOPHEN\CAFFEINE\PROPYPHENAZONE
     Indication: CHEST PAIN
     Dosage: UNK
     Route: 065
     Dates: start: 20150914, end: 20150920
  33. HYDROXYUREA. [Concomitant]
     Active Substance: HYDROXYUREA
     Indication: PRODUCT USED FOR UNKNOWN INDICATION
     Dosage: 500 MG, UNK
     Route: 065
     Dates: end: 20150730
  34. RAMIPRIL. [Concomitant]
     Active Substance: RAMIPRIL
     Indication: HYPERTENSION
     Dosage: UNK
     Route: 065
     Dates: start: 20100531, end: 20150427
  35. APREDNISLON [Concomitant]
     Active Substance: PREDNISOLONE
     Dosage: UNK
     Route: 065
  36. MEXALEN [Concomitant]
     Active Substance: ACETAMINOPHEN
     Indication: PYREXIA
     Dosage: UNK
     Route: 065
     Dates: start: 20150303, end: 20150304
  37. AUGMENTIN [Concomitant]
     Active Substance: AMOXICILLIN\CLAVULANATE POTASSIUM
     Indication: INFLAMMATION
     Dosage: UNK
     Route: 065
     Dates: start: 20160427, end: 20160501
  38. JAKAVI [Suspect]
     Active Substance: RUXOLITINIB
     Dosage: 15 MG, UNK
     Route: 048
     Dates: start: 20150522, end: 20150525
  39. JAKAVI [Suspect]
     Active Substance: RUXOLITINIB
     Dosage: 20 MG, UNK
     Route: 048
     Dates: start: 20150724, end: 20150813
  40. THROMBO ASS [Concomitant]
     Active Substance: ASPIRIN
     Dosage: UNK
     Route: 065
     Dates: start: 20150522, end: 20150723
  41. THROMBO ASS [Concomitant]
     Active Substance: ASPIRIN
     Dosage: UNK
     Route: 065
  42. NOVALGIN                           /00169801/ [Concomitant]
     Active Substance: ACETAMINOPHEN\CAFFEINE\PROPYPHENAZONE
     Indication: CHEST PAIN
     Dosage: 500 MG, TID
     Route: 065
     Dates: start: 20141128, end: 20150630
  43. AUGMENTIN [Concomitant]
     Active Substance: AMOXICILLIN\CLAVULANATE POTASSIUM
     Indication: PYREXIA
     Dosage: 1 G, BID FURTHER ON 7 DAYS
     Route: 065
     Dates: start: 20150305, end: 20150321
  44. NOVALGIN (CAFFEINE\PARACETAMOL\PROPYPHENAZONE) [Concomitant]
     Active Substance: ACETAMINOPHEN\CAFFEINE\PROPYPHENAZONE
     Indication: ARTHRALGIA
     Dosage: 500 MG, TID
     Route: 065
     Dates: start: 20141128, end: 20150630
  45. NOVALGIN (CAFFEINE\PARACETAMOL\PROPYPHENAZONE) [Concomitant]
     Active Substance: ACETAMINOPHEN\CAFFEINE\PROPYPHENAZONE
     Dosage: UNK
     Route: 065
     Dates: start: 20151202
  46. JAKAVI [Suspect]
     Active Substance: RUXOLITINIB
     Dosage: 30 MG, UNK
     Route: 048
     Dates: start: 20130710, end: 20131013
  47. JAKAVI [Suspect]
     Active Substance: RUXOLITINIB
     Dosage: 35 MG, UNK
     Route: 048
     Dates: start: 20131014, end: 20141029
  48. JAKAVI [Suspect]
     Active Substance: RUXOLITINIB
     Dosage: 30 MG, UNK
     Route: 048
     Dates: start: 20150526, end: 20150531
  49. APREDNISLON [Concomitant]
     Active Substance: PREDNISOLONE
     Dosage: UNK
     Route: 065
     Dates: start: 20150102, end: 20150106
  50. FAMVIR//FAMCICLOVIR [Concomitant]
     Indication: ORAL HERPES
     Dosage: UNK
     Route: 065
     Dates: start: 20150730, end: 20150819
  51. THROMBO ASS [Concomitant]
     Active Substance: ASPIRIN
     Dosage: 100 MG, QD
     Route: 065
     Dates: start: 20141210, end: 20150107
  52. THROMBO ASS [Concomitant]
     Active Substance: ASPIRIN
     Dosage: UNK
     Route: 065
     Dates: start: 20150921, end: 20150927
  53. LASIX [Concomitant]
     Active Substance: FUROSEMIDE
     Indication: OEDEMA PERIPHERAL
     Dosage: 0.5 DF, PRN (1/2 WHEN NEDED)
     Route: 065
     Dates: start: 20120709
  54. RINGER LACTAT                      /03352501/ [Concomitant]
     Dosage: UNK
     Route: 065
     Dates: start: 20150330, end: 20150330
  55. AVELOX [Concomitant]
     Active Substance: MOXIFLOXACIN HYDROCHLORIDE
     Indication: PYREXIA
     Dosage: UNK
     Route: 065
     Dates: start: 20150701, end: 20150705
  56. UROSIN [Concomitant]
     Active Substance: ALLOPURINOL
     Dosage: UNK
     Route: 065
  57. AUGMENTIN [Concomitant]
     Active Substance: AMOXICILLIN\CLAVULANATE POTASSIUM
     Dosage: UNK
     Route: 065
     Dates: start: 20150520, end: 20150526

REACTIONS (32)
  - Haemorrhage [Recovered/Resolved]
  - Coronary artery disease [Recovered/Resolved]
  - Heart valve stenosis [Recovered/Resolved]
  - Myelofibrosis [Fatal]
  - Peripheral vascular disorder [Unknown]
  - Activated partial thromboplastin time prolonged [Unknown]
  - C-reactive protein increased [Unknown]
  - Dyspnoea [Recovered/Resolved]
  - Platelet count increased [Unknown]
  - Blood uric acid increased [Unknown]
  - White blood cell count increased [Unknown]
  - Pulmonary congestion [Recovered/Resolved]
  - Systolic dysfunction [Unknown]
  - Anaemia [Unknown]
  - Diffuse large B-cell lymphoma [Recovered/Resolved]
  - Back pain [Unknown]
  - Aortic stenosis [Unknown]
  - Blood alkaline phosphatase increased [Unknown]
  - Prothrombin time prolonged [Unknown]
  - Chest discomfort [Recovered/Resolved]
  - Pyrexia [Recovered/Resolved]
  - Hyperlipidaemia [Unknown]
  - Osteonecrosis [Recovered/Resolved]
  - Haematoma [Recovered/Resolved]
  - Acute myeloid leukaemia [Unknown]
  - Osteitis [Recovered/Resolved]
  - Inflammation [Recovered/Resolved]
  - Right ventricular dilatation [Fatal]
  - Second primary malignancy [Recovering/Resolving]
  - Arteriosclerosis [Recovered/Resolved]
  - Osteitis [Recovered/Resolved]
  - Chest pain [Recovered/Resolved]

NARRATIVE: CASE EVENT DATE: 20140906
